FAERS Safety Report 24723180 (Version 1)
Quarter: 2024Q4

REPORT INFORMATION
  Report Type: Spontaneous
  Country: CA (occurrence: CA)
  Receive Date: 20241211
  Receipt Date: 20241211
  Transmission Date: 20250115
  Serious: Yes (Life-Threatening, Other)
  Sender: AMERICAN REGENT
  Company Number: CA-AMERICAN REGENT INC-2024004616

PATIENT
  Age: 72 Year
  Sex: Female

DRUGS (1)
  1. VENOFER [Suspect]
     Active Substance: IRON SUCROSE
     Indication: Iron deficiency
     Dosage: UNK

REACTIONS (12)
  - Hypoperfusion [Unknown]
  - Oxygen therapy [Unknown]
  - Hypoaesthesia [Unknown]
  - Malaise [Unknown]
  - Paraesthesia [Unknown]
  - Abdominal pain [Unknown]
  - Back pain [Unknown]
  - Blood pressure decreased [Unknown]
  - Dizziness [Unknown]
  - Hypotension [Unknown]
  - Peripheral swelling [Unknown]
  - Vomiting [Unknown]
